FAERS Safety Report 6052622-2 (Version None)
Quarter: 2009Q1

REPORT INFORMATION
  Report Type: 
  Country: None (occurrence: None)
  Receive Date: 20090127
  Receipt Date: 20090115
  Transmission Date: 20090719
  Serious: Yes (Other)
  Sender: FDA-Public Use
  Company Number: US-BAYER-200831130NA

PATIENT
  Sex: Female

DRUGS (1)
  1. BETASERON [Suspect]
     Indication: DRUG USE FOR UNKNOWN INDICATION
     Dates: start: 20051201, end: 20070701

REACTIONS (2)
  - CONVULSION [None]
  - INJECTION SITE NECROSIS [None]
